FAERS Safety Report 8110284-4 (Version None)
Quarter: 2012Q1

REPORT INFORMATION
  Report Type: 
  Country: None (occurrence: None)
  Receive Date: 20120202
  Receipt Date: 20120125
  Transmission Date: 20120608
  Serious: Yes (Hospitalization, Disabling, Other)
  Sender: FDA-Public Use
  Company Number: ES-ABBOTT-12P-144-0898229-00

PATIENT
  Age: 48 Year
  Sex: Female

DRUGS (3)
  1. HUMIRA [Suspect]
     Indication: HLA MARKER STUDY POSITIVE
  2. METHOTREXATE [Suspect]
     Indication: SPONDYLOARTHROPATHY
     Route: 048
  3. HUMIRA [Suspect]
     Indication: SPONDYLOARTHROPATHY
     Dates: start: 20100401, end: 20111001

REACTIONS (11)
  - HEMIANOPIA HOMONYMOUS [None]
  - ISCHAEMIC STROKE [None]
  - CAROTID ARTERY STENOSIS [None]
  - HEMIPARESIS [None]
  - HYPOAESTHESIA [None]
  - CEREBRAL ARTERY STENOSIS [None]
  - VIITH NERVE PARALYSIS [None]
  - DIASTOLIC DYSFUNCTION [None]
  - MITRAL VALVE INCOMPETENCE [None]
  - HEMIPLEGIA [None]
  - HEMIANOPIA [None]
